FAERS Safety Report 15509080 (Version 1)
Quarter: 2018Q4

REPORT INFORMATION
  Report Type: Spontaneous
  Country: US (occurrence: US)
  Receive Date: 20181010
  Receipt Date: 20181010
  Transmission Date: 20190205
  Serious: Yes (Death, Hospitalization)
  Sender: FDA-Public Use
  Company Number: None

PATIENT
  Age: 4 Month
  Sex: Female
  Weight: 3.9 kg

DRUGS (3)
  1. CARBOPLATIN. [Suspect]
     Active Substance: CARBOPLATIN
     Dates: end: 20100525
  2. ETOPOSIDE (VP-16) [Suspect]
     Active Substance: ETOPOSIDE
     Dates: end: 20100525
  3. DOXORUBICIN HYDROCHLORIDE. [Suspect]
     Active Substance: DOXORUBICIN HYDROCHLORIDE
     Dates: end: 20100525

REACTIONS (20)
  - Unevaluable event [None]
  - Dyspnoea [None]
  - Oxygen saturation decreased [None]
  - Mydriasis [None]
  - Hypopnoea [None]
  - Gastric haemorrhage [None]
  - Pallor [None]
  - Peripheral coldness [None]
  - Gastrointestinal sounds abnormal [None]
  - Puncture site discharge [None]
  - Disseminated intravascular coagulation [None]
  - Pupillary reflex impaired [None]
  - Blood pressure immeasurable [None]
  - Fontanelle bulging [None]
  - Abdominal distension [None]
  - Retroperitoneal haemorrhage [None]
  - Sinus bradycardia [None]
  - Tachypnoea [None]
  - Livedo reticularis [None]
  - Ventricular tachycardia [None]

NARRATIVE: CASE EVENT DATE: 20100609
